FAERS Safety Report 8268980-4 (Version None)
Quarter: 2012Q2

REPORT INFORMATION
  Report Type: 
  Country: None (occurrence: None)
  Receive Date: 20120409
  Receipt Date: 20120404
  Transmission Date: 20120825
  Serious: Yes (Hospitalization)
  Sender: FDA-Public Use
  Company Number: PHHY2012DE022985

PATIENT
  Age: 62 Year
  Sex: Female
  Weight: 60 kg

DRUGS (4)
  1. ZOLEDRONOC ACID [Suspect]
     Dosage: 5 MG/ ONCE YEARLY, UNK
     Route: 042
  2. ZOLEDRONOC ACID [Suspect]
     Indication: OSTEOPOROSIS
     Dosage: 5 MG/ ONCE YEARLY, UNK
     Route: 042
  3. ZOLEDRONOC ACID [Suspect]
     Dosage: 5 MG/ ONCE YEARLY, UNK
     Route: 042
     Dates: start: 20101209
  4. ZOLEDRONOC ACID [Suspect]
     Dosage: 5 MG/ ONCE YEARLY, UNK
     Route: 042

REACTIONS (8)
  - BONE MARROW OEDEMA SYNDROME [None]
  - SYNOVITIS [None]
  - ARTHRALGIA [None]
  - WALKING DISABILITY [None]
  - PAIN [None]
  - CHONDROPATHY [None]
  - OSTEONECROSIS [None]
  - BONE MARROW OEDEMA [None]
